FAERS Safety Report 8411891 (Version 3)
Quarter: 2014Q1

REPORT INFORMATION
  Report Type: Report from Study
  Country: CA (occurrence: CA)
  Receive Date: 20120217
  Receipt Date: 20140217
  Transmission Date: 20141002
  Serious: No
  Sender: FDA-Public Use
  Company Number: PHHY2012CA012877

PATIENT
  Age: 76 Year
  Sex: Female

DRUGS (11)
  1. ACLASTA [Suspect]
     Indication: OSTEOPOROSIS
     Dosage: UNK UKN, UNK
     Route: 042
     Dates: start: 20100113
  2. ACLASTA [Suspect]
     Dosage: UNK UKN, UNK
     Route: 042
     Dates: start: 20110112
  3. ACLASTA [Suspect]
     Dosage: UNK UKN, UNK
     Route: 042
     Dates: start: 20120124
  4. ACLASTA [Suspect]
     Dosage: UNK UKN, UNK
     Route: 042
     Dates: start: 20130201
  5. ACLASTA [Suspect]
     Dosage: UNK UKN, UNK
     Route: 042
     Dates: start: 20140212
  6. VOLTAREN EMULGEL ^NOVARTIS^ [Concomitant]
     Indication: ANTIINFLAMMATORY THERAPY
     Dosage: UNK UKN, UNK
     Dates: start: 20120215
  7. RHOVANE [Concomitant]
     Dosage: 7.5 MG
     Dates: start: 20120215
  8. APO-ACEBUTOLOL [Concomitant]
     Dosage: 200 MG, BID
     Dates: start: 20120215
  9. AMLODIPINE [Concomitant]
     Dosage: 5 MG, DAILY
     Dates: start: 20120215
  10. HYDROCHLOROTHIAZIDE [Concomitant]
     Dosage: 12.5 MG, DAILY
     Dates: start: 20120215
  11. CARBOCAL D [Concomitant]
     Dosage: 1 DF,  (500 MG, 400 IU) BID
     Dates: start: 20120215

REACTIONS (9)
  - Fall [Unknown]
  - Joint injury [Unknown]
  - Pain [Unknown]
  - Respiratory rate increased [Unknown]
  - Back pain [Unknown]
  - Musculoskeletal pain [Unknown]
  - Blood pressure increased [Unknown]
  - Chills [Recovered/Resolved]
  - Myalgia [Recovered/Resolved]
